FAERS Safety Report 8274569-3 (Version None)
Quarter: 2012Q2

REPORT INFORMATION
  Report Type: 
  Country: None (occurrence: None)
  Receive Date: 20120411
  Receipt Date: 20120308
  Transmission Date: 20120825
  Serious: Yes (Disabling)
  Sender: FDA-Public Use
  Company Number: US-ROCHE-1048087

PATIENT
  Sex: Male

DRUGS (3)
  1. TELAPREVIR [Suspect]
     Indication: HEPATITIS C
     Dates: start: 20110901
  2. PEGASYS [Suspect]
     Indication: HEPATITIS C
     Route: 058
     Dates: start: 20110901
  3. RIBAVIRIN [Suspect]
     Indication: HEPATITIS C
     Dates: start: 20110901

REACTIONS (12)
  - FATIGUE [None]
  - SOMNOLENCE [None]
  - VERTIGO [None]
  - JOINT SWELLING [None]
  - INCREASED APPETITE [None]
  - HEPATITIS C [None]
  - ASPARTATE AMINOTRANSFERASE INCREASED [None]
  - DIZZINESS [None]
  - HYPOTENSION [None]
  - HAEMORRHAGE [None]
  - RASH [None]
  - OEDEMA PERIPHERAL [None]
